FAERS Safety Report 6343928-8 (Version None)
Quarter: 2009Q3

REPORT INFORMATION
  Report Type: 
  Country: None (occurrence: None)
  Receive Date: 20090908
  Receipt Date: 20090826
  Transmission Date: 20100115
  Serious: Yes (Hospitalization, Other)
  Sender: FDA-Public Use
  Company Number: DE-PFIZER INC-2009245108

PATIENT
  Age: 72 Year

DRUGS (6)
  1. SUTENT [Suspect]
     Indication: RENAL CELL CARCINOMA
     Dosage: 50 MG/D
     Route: 048
     Dates: start: 20090209, end: 20090617
  2. METOPROLOL [Concomitant]
     Indication: HYPERTENSION
     Dosage: 95 MG/D
  3. ACTRAPID [Concomitant]
     Indication: DIABETES MELLITUS
  4. INSULIN DETEMIR [Concomitant]
     Indication: DIABETES MELLITUS
  5. MARCUMAR [Concomitant]
     Indication: ATRIAL FIBRILLATION
  6. MARCUMAR [Concomitant]
     Indication: MITRAL VALVE REPLACEMENT

REACTIONS (2)
  - GASTROINTESTINAL NECROSIS [None]
  - PERITONITIS [None]
